FAERS Safety Report 22002194 (Version 1)
Quarter: 2023Q1

REPORT INFORMATION
  Report Type: Spontaneous
  Country: US (occurrence: US)
  Receive Date: 20230217
  Receipt Date: 20230217
  Transmission Date: 20230418
  Serious: No
  Sender: FDA-Public Use
  Company Number: US-ALKEM LABORATORIES LIMITED-US-ALKEM-2022-07180

PATIENT
  Age: 3 Year
  Sex: Male

DRUGS (1)
  1. TRIAMCINOLONE ACETONIDE [Suspect]
     Active Substance: TRIAMCINOLONE ACETONIDE
     Indication: Product used for unknown indication
     Dosage: 40 MILLIGRAM PER MILLILITRE (SINGLE DOSE)
     Route: 026

REACTIONS (2)
  - Application site discolouration [Recovering/Resolving]
  - Skin atrophy [Recovering/Resolving]
